FAERS Safety Report 7920426 (Version 3)
Quarter: 2014Q1

REPORT INFORMATION
  Report Type: Spontaneous
  Country: US (occurrence: US)
  Receive Date: 20110429
  Receipt Date: 20140205
  Transmission Date: 20141002
  Serious: Yes (Hospitalization, Other)
  Sender: FDA-Public Use
  Company Number: US-BAYER-2010-002563

PATIENT
  Age: 19 Year
  Sex: Female
  Weight: 90.25 kg

DRUGS (3)
  1. YAZ [Suspect]
     Dosage: UNK
     Dates: start: 200606, end: 200907
  2. NUVARING [Concomitant]
     Dosage: UNK
     Dates: start: 200606, end: 200907
  3. KARIVA [Concomitant]
     Dosage: UNK
     Dates: start: 200606, end: 200907

REACTIONS (3)
  - Gallbladder injury [None]
  - Injury [None]
  - Cholecystitis chronic [None]
